FAERS Safety Report 15326823 (Version 1)
Quarter: 2018Q3

REPORT INFORMATION
  Report Type: Spontaneous
  Country: US (occurrence: US)
  Receive Date: 20180828
  Receipt Date: 20180828
  Transmission Date: 20181010
  Serious: No
  Sender: FDA-Public Use
  Company Number: US-BAYER-2018-161835

PATIENT
  Sex: Female

DRUGS (9)
  1. NICARDIPINE HYDROCHLORIDE. [Concomitant]
     Active Substance: NICARDIPINE HYDROCHLORIDE
  2. BETASERON [Suspect]
     Active Substance: INTERFERON BETA-1B
     Indication: DYSKINESIA
  3. HYDROCHLOROTHIAZIDE. [Concomitant]
     Active Substance: HYDROCHLOROTHIAZIDE
  4. OMEPRAZOLE. [Concomitant]
     Active Substance: OMEPRAZOLE
  5. LISINOPRIL. [Concomitant]
     Active Substance: LISINOPRIL
  6. AMITRIPTYLINE HCL [Concomitant]
     Active Substance: AMITRIPTYLINE
  7. TOPROL XL [Concomitant]
     Active Substance: METOPROLOL SUCCINATE
  8. BETASERON [Suspect]
     Active Substance: INTERFERON BETA-1B
     Indication: GAIT DISTURBANCE
     Dosage: 0.25 MG, QOD
     Route: 058
  9. GABAPENTIN. [Concomitant]
     Active Substance: GABAPENTIN

REACTIONS (3)
  - Product use in unapproved indication [None]
  - Off label use of device [None]
  - Injection site erythema [Not Recovered/Not Resolved]
